FAERS Safety Report 6262437-8 (Version None)
Quarter: 2009Q3

REPORT INFORMATION
  Report Type: 
  Country: None (occurrence: None)
  Receive Date: 20090709
  Receipt Date: 20090701
  Transmission Date: 20100115
  Serious: Yes (Hospitalization)
  Sender: FDA-Public Use
  Company Number: US-ABBOTT-09P-163-0583395-00

PATIENT
  Sex: Male
  Weight: 72.64 kg

DRUGS (6)
  1. HUMIRA [Suspect]
     Indication: CROHN'S DISEASE
     Dates: start: 20070701
  2. SEREVENT [Concomitant]
     Indication: ASTHMA
  3. FLOVENT [Concomitant]
     Indication: ASTHMA
  4. ACCOLATE [Concomitant]
     Indication: ASTHMA
  5. ASACOL [Concomitant]
     Indication: CROHN'S DISEASE
  6. FLOMAX [Concomitant]
     Indication: PROSTATOMEGALY

REACTIONS (4)
  - PAIN [None]
  - POLLAKIURIA [None]
  - PYREXIA [None]
  - URINARY TRACT INFECTION [None]
